FAERS Safety Report 7471454-1 (Version None)
Quarter: 2011Q2

REPORT INFORMATION
  Report Type: 
  Country: None (occurrence: None)
  Receive Date: 20110511
  Receipt Date: 20110502
  Transmission Date: 20111010
  Serious: Yes (Hospitalization, Other)
  Sender: FDA-Public Use
  Company Number: CH-BIOGENIDEC-2011BI008990

PATIENT
  Age: 28 Year
  Sex: Female

DRUGS (3)
  1. AVONEX [Suspect]
     Indication: RELAPSING-REMITTING MULTIPLE SCLEROSIS
     Route: 030
     Dates: end: 20110304
  2. YASMIN [Concomitant]
     Indication: CONTRACEPTION
  3. CITALOPRAM HYDROBROMIDE [Concomitant]
     Indication: DEPRESSION
     Dates: start: 20100101

REACTIONS (2)
  - ACUTE HEPATIC FAILURE [None]
  - HAEMOCHROMATOSIS [None]
